FAERS Safety Report 8433641-5 (Version None)
Quarter: 2012Q2

REPORT INFORMATION
  Report Type: 
  Country: None (occurrence: None)
  Receive Date: 20120613
  Receipt Date: 20120601
  Transmission Date: 20120825
  Serious: Yes (Other)
  Sender: FDA-Public Use
  Company Number: MX-INCYTE CORPORATION-2012IN001004

PATIENT
  Sex: Female
  Weight: 68 kg

DRUGS (2)
  1. PROTON PUMP INHIBITORS [Concomitant]
     Dosage: UNK
     Dates: start: 20070201
  2. INC424 [Suspect]
     Indication: MYELOFIBROSIS
     Dosage: 20 MG, BID
     Route: 048
     Dates: start: 20120514, end: 20120529

REACTIONS (2)
  - NAUSEA [None]
  - DIZZINESS [None]
